FAERS Safety Report 8252006-2 (Version None)
Quarter: 2012Q2

REPORT INFORMATION
  Report Type: 
  Country: None (occurrence: None)
  Receive Date: 20120402
  Receipt Date: 20120321
  Transmission Date: 20120825
  Serious: Yes (Other)
  Sender: FDA-Public Use
  Company Number: PHHY2010BR27290

PATIENT
  Sex: Male

DRUGS (7)
  1. MELHORAL INFANTIL [Concomitant]
     Indication: ANTIPLATELET THERAPY
     Dosage: 100 MG, QD (AFTER LUNCH)
  2. ATENOLOL [Concomitant]
     Indication: HYPERTENSION
     Dosage: 2 DF (UNK), DAILY
  3. DIOVAN HCT [Suspect]
  4. DIOSMIN W/HESPERIDIN [Concomitant]
     Indication: BURNING SENSATION
     Dosage: 1 DF(450/50 MG), BID (MORNING + NIGHT)
  5. ATACAND [Concomitant]
     Indication: HYPERTENSION
     Dosage: 1 DF, QD (AT NIGH)
  6. CLOPIDOGREL [Concomitant]
     Dosage: 75 MG, QD (AFTER LUNH)
  7. EXFORGE HCT [Suspect]
     Indication: HYPERTENSION
     Dosage: 1 DF, QD (MORNING)
     Dates: start: 20091026, end: 20100301

REACTIONS (6)
  - ARTERIAL DISORDER [None]
  - HYPERTENSION [None]
  - CATARACT [None]
  - OEDEMA PERIPHERAL [None]
  - BURNING SENSATION [None]
  - BACK PAIN [None]
